FAERS Safety Report 15934122 (Version 3)
Quarter: 2019Q2

REPORT INFORMATION
  Report Type: Spontaneous
  Country: US (occurrence: US)
  Receive Date: 20190207
  Receipt Date: 20190417
  Transmission Date: 20190711
  Serious: No
  Sender: FDA-Public Use
  Company Number: US-SA-2019SA033803

PATIENT
  Age: 34 Year
  Sex: Female

DRUGS (1)
  1. DUPIXENT [Suspect]
     Active Substance: DUPILUMAB
     Dosage: UNK UNK, 1X
     Dates: start: 20190117

REACTIONS (3)
  - Product administration error [Unknown]
  - Lacrimation increased [Unknown]
  - Eye discharge [Unknown]

NARRATIVE: CASE EVENT DATE: 20190117
